FAERS Safety Report 5026669-9 (Version None)
Quarter: 2006Q2

REPORT INFORMATION
  Report Type: 
  Country: None (occurrence: None)
  Receive Date: 20060615
  Receipt Date: 20060604
  Transmission Date: 20061013
  Serious: Yes (Other)
  Sender: FDA-Public Use
  Company Number: FR-GLAXOSMITHKLINE-B0426831A

PATIENT
  Age: 59 Year
  Sex: Female

DRUGS (4)
  1. REQUIP [Suspect]
     Indication: RESTLESS LEGS SYNDROME
     Dosage: .5MG AT NIGHT
     Route: 048
     Dates: start: 20060603, end: 20060603
  2. DEROXAT [Concomitant]
     Route: 048
  3. RIVOTRIL [Concomitant]
     Route: 065
  4. ACTIVELLE [Concomitant]
     Indication: HORMONE REPLACEMENT THERAPY
     Route: 065

REACTIONS (9)
  - ANXIETY [None]
  - DYSPHAGIA [None]
  - FEELING HOT [None]
  - INSOMNIA [None]
  - MALAISE [None]
  - MIGRAINE WITHOUT AURA [None]
  - NASAL CONGESTION [None]
  - PALPITATIONS [None]
  - SUDDEN ONSET OF SLEEP [None]
